FAERS Safety Report 24688380 (Version 2)
Quarter: 2024Q4

REPORT INFORMATION
  Report Type: Spontaneous
  Country: US (occurrence: US)
  Receive Date: 20241202
  Receipt Date: 20241217
  Transmission Date: 20250115
  Serious: No
  Sender: MERCK
  Company Number: US-009507513-2411USA001108

PATIENT
  Sex: Male
  Weight: 81.6 kg

DRUGS (18)
  1. WINREVAIR [Suspect]
     Active Substance: SOTATERCEPT-CSRK
     Indication: Product used for unknown indication
     Dosage: UNK
  2. REMODULIN [Suspect]
     Active Substance: TREPROSTINIL
     Indication: Pulmonary arterial hypertension
     Dosage: 0.096 MICROGRAM PER KILOGRAM, CONTINUING
     Route: 041
     Dates: start: 20210401
  3. CEFAZOLIN SODIUM [Concomitant]
     Active Substance: CEFAZOLIN SODIUM
  4. SAW PALMETTO EXTRACT [Concomitant]
  5. LASIX [Concomitant]
     Active Substance: FUROSEMIDE
  6. SILDENAFIL [Concomitant]
     Active Substance: SILDENAFIL
  7. OPSUMIT [Concomitant]
     Active Substance: MACITENTAN
  8. VITAMIN D3 [Concomitant]
     Active Substance: CHOLECALCIFEROL
  9. OXYGEN [Concomitant]
     Active Substance: OXYGEN
  10. LISINOPRIL [Concomitant]
     Active Substance: LISINOPRIL
  11. MAGNESIUM [Concomitant]
     Active Substance: MAGNESIUM
  12. PLAVIX [Concomitant]
     Active Substance: CLOPIDOGREL BISULFATE
  13. PRILOSEC [Concomitant]
     Active Substance: OMEPRAZOLE MAGNESIUM
  14. AMLODIPINE BESYLATE [Concomitant]
     Active Substance: AMLODIPINE BESYLATE
  15. POTASSIUM CHLORIDE [Concomitant]
     Active Substance: POTASSIUM CHLORIDE
  16. DICLOFENAC SODIUM [Concomitant]
     Active Substance: DICLOFENAC SODIUM
  17. HYDROCHLOROTHIAZIDE [Concomitant]
     Active Substance: HYDROCHLOROTHIAZIDE
  18. VAZALORE [Concomitant]
     Active Substance: ASPIRIN

REACTIONS (3)
  - Haemoglobin abnormal [Unknown]
  - Platelet count abnormal [Unknown]
  - Haemorrhage [Recovered/Resolved]
